FAERS Safety Report 16399457 (Version 3)
Quarter: 2019Q2

REPORT INFORMATION
  Report Type: Spontaneous
  Country: US (occurrence: US)
  Receive Date: 20190606
  Receipt Date: 20190618
  Transmission Date: 20190711
  Serious: Yes (Other)
  Sender: FDA-Public Use
  Company Number: US-PFIZER INC-2019236464

PATIENT
  Age: 47 Year
  Sex: Female

DRUGS (1)
  1. SPIRONOLACTONE. [Suspect]
     Active Substance: SPIRONOLACTONE
     Indication: ALOPECIA
     Dosage: UNK

REACTIONS (4)
  - Dyspareunia [Recovered/Resolved]
  - Vulvovaginal discomfort [Recovered/Resolved]
  - Off label use [Unknown]
  - Product use in unapproved indication [Unknown]
